FAERS Safety Report 16197768 (Version 1)
Quarter: 2019Q2

REPORT INFORMATION
  Report Type: Spontaneous
  Country: US (occurrence: US)
  Receive Date: 20190311
  Receipt Date: 20190311
  Transmission Date: 20190711
  Serious: Yes (Life-Threatening, Hospitalization, Disabling)
  Sender: FDA-Public Use
  Company Number: None

PATIENT
  Age: 72 Year
  Sex: Female
  Weight: 45.36 kg

DRUGS (14)
  1. IBROTINIB [Concomitant]
  2. SAMSCA [Concomitant]
     Active Substance: TOLVAPTAN
  3. LEVOTHYROXINE/SYNTHROID [Concomitant]
  4. INTERMEZZO/ZOLPIDEM TARTATE [Concomitant]
  5. VITAMIN B12 [Concomitant]
     Active Substance: CYANOCOBALAMIN
  6. ZOLOFT/SERTRALINE [Concomitant]
  7. BEVESPI INHALER [Concomitant]
  8. NEXIUM [Concomitant]
     Active Substance: ESOMEPRAZOLE MAGNESIUM
  9. ALLOPURINOL/ZYLOPRIM [Concomitant]
  10. METOCLOPRAMIDE/REGLAN [Concomitant]
  11. IRBESARTAN GENERIC FOR AVAPRO [Suspect]
     Active Substance: IRBESARTAN
     Indication: HYPERTENSION
     Dosage: ?          QUANTITY:150 ML MILLILITRE(S);?
     Route: 048
     Dates: start: 20090320, end: 20180807
  12. VITAMIN D3 [Concomitant]
     Active Substance: CHOLECALCIFEROL
  13. LOPRESSOR [Concomitant]
     Active Substance: METOPROLOL TARTRATE
  14. CREON/PANCRELIPASE [Concomitant]

REACTIONS (2)
  - Non-Hodgkin^s lymphoma [None]
  - Chronic lymphocytic leukaemia [None]

NARRATIVE: CASE EVENT DATE: 20180406
